FAERS Safety Report 6082879-3 (Version None)
Quarter: 2009Q1

REPORT INFORMATION
  Report Type: 
  Country: None (occurrence: None)
  Receive Date: 20090218
  Receipt Date: 20090210
  Transmission Date: 20090719
  Serious: Yes (Other)
  Sender: FDA-Public Use
  Company Number: PHEH2009US01592

PATIENT
  Sex: Female

DRUGS (4)
  1. RECLAST [Suspect]
     Dosage: UNK
     Dates: start: 20080301
  2. ARTHROTEC [Suspect]
     Dosage: 50 MG, BID
     Route: 048
  3. ARTHROTEC [Suspect]
     Dosage: 50 MG, QD
     Route: 048
  4. PLAVIX [Concomitant]
     Dosage: 75 MG, QD

REACTIONS (2)
  - HAEMORRHAGE [None]
  - MUSCULOSKELETAL PAIN [None]
